FAERS Safety Report 6994069-8 (Version None)
Quarter: 2010Q3

REPORT INFORMATION
  Report Type: 
  Country: None (occurrence: None)
  Receive Date: 20100917
  Receipt Date: 20100331
  Transmission Date: 20110219
  Serious: Yes (Hospitalization)
  Sender: FDA-Public Use
  Company Number: US-ASTRAZENECA-2009SE27503

PATIENT
  Sex: Male

DRUGS (4)
  1. SEROQUEL [Suspect]
     Indication: PARANOIA
     Dosage: 100 MG TO 250 MG HS
     Route: 048
     Dates: start: 20000724
  2. ZOLOFT [Concomitant]
     Indication: PARANOIA
     Dosage: 50 TO 150 MG
     Dates: start: 20010123
  3. ZOLOFT [Concomitant]
     Indication: DEPRESSION
     Dosage: 50 TO 150 MG
     Dates: start: 20010123
  4. LEXAPRO [Concomitant]
     Dates: start: 20081211

REACTIONS (1)
  - DIABETES MELLITUS [None]
